FAERS Safety Report 10360456 (Version 1)
Quarter: 2014Q3

REPORT INFORMATION
  Report Type: Spontaneous
  Country: US (occurrence: US)
  Receive Date: 20140804
  Receipt Date: 20140804
  Transmission Date: 20150326
  Serious: Yes (Hospitalization, Other)
  Sender: FDA-Public Use
  Company Number: PHHY2014US091866

PATIENT
  Age: 47 Year
  Sex: Male

DRUGS (7)
  1. DOBUTAMINE [Suspect]
     Active Substance: DOBUTAMINE\DOBUTAMINE HYDROCHLORIDE
     Dosage: 10 UG/KG, PER MIN
  2. GLUCAGON. [Suspect]
     Active Substance: GLUCAGON
     Dosage: 14 MG, UNK
     Route: 042
  3. KETAMINE [Suspect]
     Active Substance: KETAMINE
     Dosage: 80 MG, UNK
     Route: 042
  4. EPINEPHRINE. [Suspect]
     Active Substance: EPINEPHRINE
     Dosage: 0.1 UG/KG, PER MIN
  5. METOPROLOL [Suspect]
     Active Substance: METOPROLOL
     Dosage: 10 G, UNK
  6. EPINEPHRINE. [Suspect]
     Active Substance: EPINEPHRINE
     Dosage: 5 MG, UNK
     Route: 042
  7. ROCURONIUM [Suspect]
     Active Substance: ROCURONIUM BROMIDE
     Dosage: 80 MG, UNK
     Route: 042

REACTIONS (9)
  - Toxicity to various agents [Recovering/Resolving]
  - Cardiac arrest [Recovering/Resolving]
  - Drug ineffective [Unknown]
  - Loss of consciousness [Recovering/Resolving]
  - Suicide attempt [Recovering/Resolving]
  - Coma [Recovering/Resolving]
  - Hypotension [Recovering/Resolving]
  - Bradycardia [Recovering/Resolving]
  - Cardiotoxicity [Recovering/Resolving]
